FAERS Safety Report 11131533 (Version 2)
Quarter: 2015Q3

REPORT INFORMATION
  Report Type: Spontaneous
  Country: US (occurrence: US)
  Receive Date: 20150522
  Receipt Date: 20150710
  Transmission Date: 20151125
  Serious: Yes (Disabling)
  Sender: FDA-Public Use
  Company Number: US-PFIZER INC-2015168530

PATIENT
  Age: 63 Year
  Sex: Male
  Weight: 66 kg

DRUGS (3)
  1. LYRICA [Suspect]
     Active Substance: PREGABALIN
     Indication: FIBROMYALGIA
     Dosage: 50 MG, 3X/DAY
     Route: 048
     Dates: start: 201108
  2. BACLOFEN. [Suspect]
     Active Substance: BACLOFEN
     Dosage: 4 TO 5 TIMES A DAY
     Dates: start: 201008
  3. SIMVASTATIN. [Concomitant]
     Active Substance: SIMVASTATIN
     Indication: BLOOD CHOLESTEROL ABNORMAL
     Dosage: UNK

REACTIONS (15)
  - Gingival swelling [Not Recovered/Not Resolved]
  - Nerve compression [Unknown]
  - Swelling face [Not Recovered/Not Resolved]
  - Peripheral swelling [Not Recovered/Not Resolved]
  - Body height decreased [Unknown]
  - Pain in extremity [Unknown]
  - Back injury [Not Recovered/Not Resolved]
  - Neck injury [Not Recovered/Not Resolved]
  - Feeling drunk [Not Recovered/Not Resolved]
  - Eye swelling [Not Recovered/Not Resolved]
  - Joint swelling [Not Recovered/Not Resolved]
  - Apathy [Not Recovered/Not Resolved]
  - Dyslexia [Not Recovered/Not Resolved]
  - Spinal disorder [Unknown]
  - Limb discomfort [Unknown]
